FAERS Safety Report 9147401 (Version 1)
Quarter: 2013Q1

REPORT INFORMATION
  Report Type: Spontaneous
  Country: JP (occurrence: JP)
  Receive Date: 20130307
  Receipt Date: 20130307
  Transmission Date: 20140127
  Serious: Yes (Other)
  Sender: FDA-Public Use
  Company Number: JP-GLAXOSMITHKLINE-B0871598A

PATIENT
  Age: 35 Year
  Sex: Male
  Weight: 76 kg

DRUGS (3)
  1. ZOVIRAX [Suspect]
     Indication: MENINGITIS
     Route: 042
  2. VANCOMYCIN [Concomitant]
     Indication: MENINGITIS
     Route: 065
  3. CEFTRIAXONE SODIUM HYDRATE [Concomitant]
     Indication: MENINGITIS

REACTIONS (4)
  - Drug reaction with eosinophilia and systemic symptoms [Recovered/Resolved]
  - Papule [Recovered/Resolved]
  - Dermatitis exfoliative [Recovered/Resolved]
  - Rash [Recovered/Resolved]
